APPROVED DRUG PRODUCT: SIMVASTATIN
Active Ingredient: SIMVASTATIN
Strength: 5MG
Dosage Form/Route: TABLET;ORAL
Application: A206557 | Product #005 | TE Code: AB
Applicant: INVAGEN PHARMACEUTICALS INC
Approved: Oct 27, 2025 | RLD: No | RS: No | Type: RX